FAERS Safety Report 6270241-X (Version None)
Quarter: 2009Q3

REPORT INFORMATION
  Report Type: 
  Country: None (occurrence: None)
  Receive Date: 20090716
  Receipt Date: 20090701
  Transmission Date: 20100115
  Serious: No
  Sender: FDA-Public Use
  Company Number: US-BAYER-200840168NA

PATIENT
  Age: 42 Year
  Sex: Female

DRUGS (2)
  1. MAGNEVIST [Suspect]
     Indication: SYRINGOMYELIA
     Dosage: TOTAL DAILY DOSE: 15 ML  UNIT DOSE: 15 ML
     Route: 042
     Dates: start: 20081204, end: 20081204
  2. VALIUM [Concomitant]
     Indication: PREMEDICATION
     Dates: start: 20081204, end: 20081204

REACTIONS (1)
  - VOMITING [None]
